FAERS Safety Report 10136413 (Version 1)
Quarter: 2014Q2

REPORT INFORMATION
  Report Type: Report from Study
  Country: ES (occurrence: ES)
  Receive Date: 20140429
  Receipt Date: 20140429
  Transmission Date: 20141212
  Serious: Yes (Disabling)
  Sender: FDA-Public Use
  Company Number: ES-JNJFOC-20140418762

PATIENT
  Age: 88 Year
  Sex: Female
  Weight: 65 kg

DRUGS (5)
  1. XARELTO [Suspect]
     Indication: EMBOLISM VENOUS
     Route: 048
     Dates: start: 20130809, end: 20130917
  2. XARELTO [Suspect]
     Indication: EMBOLISM VENOUS
     Route: 048
     Dates: start: 20130918, end: 20131204
  3. XARELTO [Suspect]
     Indication: DEEP VEIN THROMBOSIS
     Route: 048
     Dates: start: 20130809, end: 20130917
  4. XARELTO [Suspect]
     Indication: DEEP VEIN THROMBOSIS
     Route: 048
     Dates: start: 20130918, end: 20131204
  5. IBUPROFEN [Concomitant]
     Indication: PAIN
     Route: 065
     Dates: start: 20130809, end: 20130812

REACTIONS (1)
  - Deep vein thrombosis [Recovered/Resolved]
